FAERS Safety Report 25418198 (Version 1)
Quarter: 2025Q2

REPORT INFORMATION
  Report Type: Spontaneous
  Country: US (occurrence: None)
  Receive Date: 20250609
  Receipt Date: 20250609
  Transmission Date: 20250717
  Serious: Yes (Life-Threatening)
  Sender: FDA-CTU
  Company Number: None

PATIENT
  Age: 49 Year
  Sex: Female
  Weight: 60 kg

DRUGS (2)
  1. PIPERACILLIN AND TAZOBACTAM [Suspect]
     Active Substance: PIPERACILLIN SODIUM\TAZOBACTAM SODIUM
     Indication: Preoperative care
     Route: 040
     Dates: start: 20250607
  2. PIPERACILLIN AND TAZOBACTAM [Suspect]
     Active Substance: PIPERACILLIN SODIUM\TAZOBACTAM SODIUM
     Indication: Appendicectomy

REACTIONS (6)
  - Nausea [None]
  - Pruritus [None]
  - Anaphylactic reaction [None]
  - Unresponsive to stimuli [None]
  - Seizure [None]
  - Lip swelling [None]

NARRATIVE: CASE EVENT DATE: 20250607
